FAERS Safety Report 8392492-0 (Version None)
Quarter: 2012Q2

REPORT INFORMATION
  Report Type: 
  Country: None (occurrence: None)
  Receive Date: 20120529
  Receipt Date: 20120524
  Transmission Date: 20120825
  Serious: No
  Sender: FDA-Public Use
  Company Number: US-PFIZER INC-2012126550

PATIENT
  Sex: Female

DRUGS (2)
  1. LUNESTA [Suspect]
     Indication: INSOMNIA
     Dosage: 3 MG, (HS) ONCE NIGHTLY AT BEDTIME
     Route: 048
     Dates: start: 20090101
  2. LYRICA [Suspect]
     Indication: BACK PAIN
     Dosage: UNK
     Dates: start: 20110701

REACTIONS (1)
  - SOMNOLENCE [None]
